FAERS Safety Report 6643113-6 (Version None)
Quarter: 2010Q1

REPORT INFORMATION
  Report Type: 
  Country: None (occurrence: None)
  Receive Date: 20100319
  Receipt Date: 20100311
  Transmission Date: 20100710
  Serious: Yes (Hospitalization)
  Sender: FDA-Public Use
  Company Number: US-ABBOTT-10P-163-0618532-01

PATIENT
  Sex: Female

DRUGS (24)
  1. HUMIRA [Suspect]
     Indication: RHEUMATOID ARTHRITIS
     Route: 058
     Dates: start: 20010807
  2. ACTIFED [Concomitant]
     Indication: SINUS CONGESTION
     Route: 048
     Dates: start: 19900101
  3. VITAMIN E [Concomitant]
     Indication: MEDICAL DIET
     Route: 048
     Dates: start: 19900101
  4. FOLIC ACID [Concomitant]
     Indication: RHEUMATOID ARTHRITIS
     Route: 048
     Dates: start: 19910101
  5. OSCAL [Concomitant]
     Indication: MEDICAL DIET
     Route: 048
     Dates: start: 19920101
  6. TUMS [Concomitant]
     Indication: BARRETT'S OESOPHAGUS
     Route: 048
     Dates: start: 19960101
  7. CENTRUM [Concomitant]
     Indication: MEDICAL DIET
     Route: 048
     Dates: start: 19970101
  8. PREDNISONE [Concomitant]
     Indication: RHEUMATOID ARTHRITIS
     Route: 048
     Dates: start: 19990101
  9. METHOTREXATE [Concomitant]
     Indication: RHEUMATOID ARTHRITIS
     Route: 058
     Dates: start: 20000623
  10. SYSTANE [Concomitant]
     Indication: EYE DISORDER
     Route: 047
     Dates: start: 20040901
  11. ACETAMINOPHEN [Concomitant]
     Indication: RHEUMATOID ARTHRITIS
     Route: 048
     Dates: start: 20050301
  12. PRILOSEC [Concomitant]
     Indication: BARRETT'S OESOPHAGUS
     Route: 048
     Dates: start: 20051001
  13. ASPIRIN [Concomitant]
     Indication: THROMBOSIS PROPHYLAXIS
     Route: 048
     Dates: start: 20070302
  14. MULTIVITAMIN [Concomitant]
     Indication: MACULAR DEGENERATION
     Dosage: 1 PILL
     Route: 048
     Dates: start: 20070910
  15. VITAMIN D3 [Concomitant]
     Indication: MEDICAL DIET
     Route: 048
     Dates: start: 20080115
  16. PROPRANOLOL [Concomitant]
     Indication: TREMOR
     Route: 048
     Dates: start: 20080215
  17. ZONISAMIDE [Concomitant]
     Indication: TREMOR
     Route: 048
     Dates: start: 20080215
  18. ZONISAMIDE [Concomitant]
     Route: 048
     Dates: start: 20080215
  19. ACTONEL [Concomitant]
     Indication: OSTEOPENIA
     Route: 048
     Dates: start: 20080801
  20. CUREL [Concomitant]
     Indication: PROPHYLAXIS
     Dosage: 1 APPLICATION
     Route: 061
     Dates: start: 20090626
  21. TYLENOL-500 [Concomitant]
     Indication: PAIN
     Route: 048
     Dates: start: 20090626
  22. TYLENOL-500 [Concomitant]
  23. VOLTAREN [Concomitant]
     Indication: SWELLING
     Dosage: GEL, 1 APPLICATION
     Route: 061
     Dates: start: 20090629
  24. VOLTAREN [Concomitant]

REACTIONS (1)
  - COLON CANCER [None]
